FAERS Safety Report 19643888 (Version 3)
Quarter: 2021Q3

REPORT INFORMATION
  Report Type: Report from Study
  Country: None (occurrence: US)
  Receive Date: 20210730
  Receipt Date: 20210809
  Transmission Date: 20211014
  Serious: Yes (Hospitalization, Disabling, Other)
  Sender: FDA-Public Use
  Company Number: US-ABBVIE-21K-163-4008586-00

PATIENT
  Age: 57 Year
  Sex: Male
  Weight: 79.45 kg

DRUGS (14)
  1. RINVOQ [Suspect]
     Active Substance: UPADACITINIB
     Route: 048
     Dates: start: 20210305, end: 20210326
  2. TEARS [Concomitant]
     Active Substance: LANOLIN\PARAFFIN
     Indication: EYE DISORDER
     Dosage: RETVITAL TEARS
  3. ATENOLOL. [Concomitant]
     Active Substance: ATENOLOL
     Indication: TACHYCARDIA
  4. DICLOMINE [Concomitant]
     Indication: IRRITABLE BOWEL SYNDROME
  5. RINVOQ [Suspect]
     Active Substance: UPADACITINIB
     Indication: RHEUMATOID ARTHRITIS
     Route: 048
     Dates: start: 20210201, end: 20210226
  6. RINVOQ [Suspect]
     Active Substance: UPADACITINIB
     Route: 048
     Dates: start: 20210331, end: 20210719
  7. OXYCODONE [Concomitant]
     Active Substance: OXYCODONE
     Indication: PAIN
  8. OMEPRAZOLE. [Concomitant]
     Active Substance: OMEPRAZOLE
     Indication: GASTROOESOPHAGEAL REFLUX DISEASE
  9. ATENOLOL. [Concomitant]
     Active Substance: ATENOLOL
     Indication: PAIN
  10. LOTEMAX [Concomitant]
     Active Substance: LOTEPREDNOL ETABONATE
     Indication: EYE DISORDER
  11. ACTEMRA [Concomitant]
     Active Substance: TOCILIZUMAB
     Indication: PRODUCT USED FOR UNKNOWN INDICATION
  12. MODERNA COVID?19 VACCINE [Concomitant]
     Active Substance: CX-024414
     Indication: COVID-19 IMMUNISATION
     Dosage: MODERNA
     Route: 030
     Dates: start: 20210226, end: 20210226
  13. MODERNA COVID?19 VACCINE [Concomitant]
     Active Substance: CX-024414
     Dosage: MODERNA
     Route: 030
     Dates: start: 20210326, end: 20210326
  14. MELOXICAM. [Concomitant]
     Active Substance: MELOXICAM
     Indication: PAIN

REACTIONS (19)
  - Intervertebral disc protrusion [Recovered/Resolved]
  - Pelvic pain [Not Recovered/Not Resolved]
  - Back pain [Recovered/Resolved]
  - SARS-CoV-2 antibody test positive [Unknown]
  - Testicular seminoma (pure) stage I [Not Recovered/Not Resolved]
  - Abdominal pain [Not Recovered/Not Resolved]
  - Presyncope [Recovered/Resolved]
  - Rheumatoid arthritis [Not Recovered/Not Resolved]
  - Testicular seminoma (pure) [Not Recovered/Not Resolved]
  - Cyst [Recovered/Resolved]
  - Back pain [Recovered/Resolved]
  - Cyst [Recovered/Resolved]
  - Cyst [Unknown]
  - Intervertebral disc protrusion [Unknown]
  - Therapeutic response unexpected [Unknown]
  - Presyncope [Not Recovered/Not Resolved]
  - Hypophagia [Not Recovered/Not Resolved]
  - Liver function test increased [Not Recovered/Not Resolved]
  - Hepatic enzyme increased [Not Recovered/Not Resolved]

NARRATIVE: CASE EVENT DATE: 2021
